APPROVED DRUG PRODUCT: CEFOTAXIME SODIUM
Active Ingredient: CEFOTAXIME SODIUM
Strength: EQ 2GM BASE/VIAL
Dosage Form/Route: INJECTABLE;INJECTION
Application: A065290 | Product #003
Applicant: HOSPIRA INC
Approved: Aug 11, 2006 | RLD: No | RS: No | Type: DISCN